FAERS Safety Report 6784331-6 (Version None)
Quarter: 2010Q2

REPORT INFORMATION
  Report Type: 
  Country: None (occurrence: None)
  Receive Date: 20100617
  Receipt Date: 20100607
  Transmission Date: 20101027
  Serious: Yes (Hospitalization, Other)
  Sender: FDA-Public Use
  Company Number: 8040899

PATIENT
  Sex: Female
  Weight: 170.5 kg

DRUGS (10)
  1. CERTOLIZUMAB PEGOL [Suspect]
     Indication: RHEUMATOID ARTHRITIS
     Dosage: (SUBCUTANEOUS)
     Route: 058
     Dates: start: 20081208
  2. FOLIC ACID [Concomitant]
  3. MULTIVITAMIN /01229101/ [Concomitant]
  4. PREDNISONE [Concomitant]
  5. IRON [Concomitant]
  6. METHOTREXATE [Concomitant]
  7. ZYRTEC [Concomitant]
  8. ADVAIR DISKUS 100/50 [Concomitant]
  9. ALBUTEROL [Concomitant]
  10. PREVACID [Concomitant]

REACTIONS (6)
  - BLOOD ALBUMIN DECREASED [None]
  - BLOOD CALCIUM DECREASED [None]
  - BLOOD POTASSIUM DECREASED [None]
  - CULTURE URINE POSITIVE [None]
  - ESCHERICHIA INFECTION [None]
  - PYELONEPHRITIS [None]
